FAERS Safety Report 6836883-5 (Version None)
Quarter: 2010Q3

REPORT INFORMATION
  Report Type: 
  Country: None (occurrence: None)
  Receive Date: 20100708
  Receipt Date: 20100408
  Transmission Date: 20110219
  Serious: Yes (Other)
  Sender: FDA-Public Use
  Company Number: GB-ACCORD-004805

PATIENT
  Age: 36 Year
  Sex: Female

DRUGS (1)
  1. MYCOPHENOLATE MOFETIL [Suspect]
     Dosage: 1.00-G2.00 PER 1.0 DAYS / ORAL
     Route: 048

REACTIONS (2)
  - OEDEMA PERIPHERAL [None]
  - OFF LABEL USE [None]
